FAERS Safety Report 24747298 (Version 1)
Quarter: 2024Q4

REPORT INFORMATION
  Report Type: Other
  Country: IN (occurrence: IN)
  Receive Date: 20241218
  Receipt Date: 20241218
  Transmission Date: 20250115
  Serious: Yes (Other)
  Sender: DEXCEL
  Company Number: IN-DEXPHARM-2024-5030

PATIENT
  Age: 30 Year
  Sex: Female

DRUGS (2)
  1. DEXAMETHASONE [Suspect]
     Active Substance: DEXAMETHASONE
     Dosage: INTRAVENOUS DEXAMETHASONE 4?MG EVERY 8?H FOR 5?DAYS
     Route: 050
  2. DEXAMETHASONE [Suspect]
     Active Substance: DEXAMETHASONE
     Dosage: FROM DAY 6 ONWARDS, ORAL DEXAMETHASONE (12?MG) WAS INITIATED. IT WAS PLANNED TO TAPER DEXAMETHASO...
     Route: 050

REACTIONS (2)
  - Lactation insufficiency [Recovered/Resolved]
  - Maternal exposure during breast feeding [Recovered/Resolved]
